FAERS Safety Report 6091983-5 (Version None)
Quarter: 2009Q1

REPORT INFORMATION
  Report Type: 
  Country: None (occurrence: None)
  Receive Date: 20090225
  Receipt Date: 20081120
  Transmission Date: 20090719
  Serious: No
  Sender: FDA-Public Use
  Company Number: A0757440A

PATIENT
  Age: 16 Year
  Sex: Female

DRUGS (2)
  1. VALTREX [Suspect]
     Dosage: 1G PER DAY
     Route: 048
     Dates: start: 20081108, end: 20081110
  2. YAZ [Suspect]
     Route: 048

REACTIONS (1)
  - URTICARIA [None]
